FAERS Safety Report 19462564 (Version 1)
Quarter: 2021Q2

REPORT INFORMATION
  Report Type: Report from Study
  Country: None (occurrence: US)
  Receive Date: 20210625
  Receipt Date: 20210625
  Transmission Date: 20210717
  Serious: Yes (Other)
  Sender: FDA-Public Use
  Company Number: US-ABBVIE-21K-163-3961958-00

PATIENT
  Sex: Female

DRUGS (1)
  1. CREON [Suspect]
     Active Substance: PANCRELIPASE AMYLASE\PANCRELIPASE LIPASE\PANCRELIPASE PROTEASE
     Indication: PANCREATIC FAILURE
     Route: 048

REACTIONS (6)
  - Spondylitis [Unknown]
  - Pancreatic failure [Unknown]
  - Illness [Unknown]
  - Rotator cuff syndrome [Unknown]
  - Meniscus injury [Unknown]
  - Cerebrovascular accident [Unknown]
